FAERS Safety Report 6168769-6 (Version None)
Quarter: 2009Q2

REPORT INFORMATION
  Report Type: 
  Country: None (occurrence: None)
  Receive Date: 20090427
  Receipt Date: 20090421
  Transmission Date: 20091009
  Serious: Yes (Hospitalization)
  Sender: FDA-Public Use
  Company Number: JP-SANOFI-SYNTHELABO-A01200901369

PATIENT
  Sex: Male
  Weight: 58.4 kg

DRUGS (10)
  1. LASIX [Concomitant]
     Indication: ANGINA PECTORIS
     Route: 048
     Dates: start: 20090121
  2. TAKEPRON [Suspect]
     Indication: PROPHYLAXIS AGAINST GASTROINTESTINAL ULCER
     Route: 048
     Dates: start: 20090124, end: 20090125
  3. DISOPYRAMIDE [Suspect]
     Indication: ARRHYTHMIA
     Route: 048
     Dates: start: 20090122, end: 20090125
  4. ASPIRIN [Suspect]
     Indication: ANGINA PECTORIS
     Route: 048
     Dates: start: 20090121, end: 20090125
  5. ASPIRIN [Suspect]
     Dosage: UNK
     Route: 065
     Dates: start: 20090129
  6. GRAMALIL [Suspect]
     Indication: INSOMNIA
     Route: 048
     Dates: start: 20090122, end: 20090125
  7. PLAVIX [Suspect]
     Indication: ANGINA PECTORIS
     Route: 048
     Dates: start: 20090122, end: 20090125
  8. PLAVIX [Suspect]
     Route: 048
     Dates: start: 20080929, end: 20090108
  9. ALDACTONE [Concomitant]
     Indication: ANGINA PECTORIS
     Route: 048
     Dates: start: 20090121
  10. LENDORMIN [Suspect]
     Dosage: UNK
     Route: 065
     Dates: start: 20090123

REACTIONS (1)
  - HEPATIC FUNCTION ABNORMAL [None]
